FAERS Safety Report 7885531-4 (Version None)
Quarter: 2011Q4

REPORT INFORMATION
  Report Type: 
  Country: None (occurrence: None)
  Receive Date: 20111102
  Receipt Date: 20110706
  Transmission Date: 20120403
  Serious: Yes (Other)
  Sender: FDA-Public Use
  Company Number: US-AMGEN-USASP2011031980

PATIENT
  Age: 13 Year
  Sex: Female
  Weight: 26.077 kg

DRUGS (4)
  1. METHOTREXATE [Concomitant]
     Dosage: 15 MG, UNK
     Route: 058
     Dates: start: 20110315
  2. FOLIC ACID [Concomitant]
     Dosage: 1 MG, UNK
     Dates: start: 20110315
  3. ENBREL [Suspect]
     Indication: JUVENILE ARTHRITIS
  4. ENBREL [Suspect]
     Indication: RHEUMATOID ARTHRITIS
     Dosage: 50 MG, QWK
     Dates: start: 20110315

REACTIONS (6)
  - INJECTION SITE PAIN [None]
  - INJECTION SITE SWELLING [None]
  - INJECTION SITE ERYTHEMA [None]
  - GROIN ABSCESS [None]
  - INJECTION SITE REACTION [None]
  - INJECTION SITE WARMTH [None]
